FAERS Safety Report 19204610 (Version 2)
Quarter: 2021Q2

REPORT INFORMATION
  Report Type: Spontaneous
  Country: BR (occurrence: BR)
  Receive Date: 20210503
  Receipt Date: 20210604
  Transmission Date: 20210717
  Serious: Yes (Other)
  Sender: FDA-Public Use
  Company Number: NVSC2021BR087589

PATIENT
  Sex: Female
  Weight: 75 kg

DRUGS (3)
  1. METFORMIN [Suspect]
     Active Substance: METFORMIN HYDROCHLORIDE
     Indication: TYPE 2 DIABETES MELLITUS
     Dosage: 1 DF, BID
     Route: 048
     Dates: start: 2020, end: 202103
  2. GLIMEPIRIDE. [Concomitant]
     Active Substance: GLIMEPIRIDE
     Indication: TYPE 2 DIABETES MELLITUS
     Dosage: 1 DF, TID
     Route: 048
     Dates: start: 20210301
  3. PROMENSIL [Concomitant]
     Indication: HORMONE THERAPY
     Dosage: 1 DF, QD
     Route: 048
     Dates: start: 20210327

REACTIONS (1)
  - Blood glucose increased [Unknown]
